FAERS Safety Report 21148241 (Version 2)
Quarter: 2022Q3

REPORT INFORMATION
  Report Type: Spontaneous
  Country: US (occurrence: US)
  Receive Date: 20220729
  Receipt Date: 20220928
  Transmission Date: 20221026
  Serious: No
  Sender: FDA-Public Use
  Company Number: US-PFIZER INC-202201017705

PATIENT
  Age: 58 Year
  Sex: Female

DRUGS (1)
  1. IBRANCE [Suspect]
     Active Substance: PALBOCICLIB
     Dosage: 125 MG, CYCLIC (TAKE 1 CAPSULE DAILY FOR 21 DAYS THEN 7 DAYS OFF)
     Route: 048
     Dates: start: 20220627

REACTIONS (10)
  - Neoplasm progression [Unknown]
  - Therapeutic response unexpected [Unknown]
  - White blood cell count decreased [Unknown]
  - COVID-19 [Unknown]
  - Oropharyngeal pain [Not Recovered/Not Resolved]
  - Platelet count decreased [Unknown]
  - Fatigue [Unknown]
  - Full blood count decreased [Unknown]
  - Dysphagia [Unknown]
  - Emotional distress [Unknown]

NARRATIVE: CASE EVENT DATE: 20220827
